FAERS Safety Report 17869112 (Version 2)
Quarter: 2021Q1

REPORT INFORMATION
  Report Type: Spontaneous
  Country: FR (occurrence: FR)
  Receive Date: 20200608
  Receipt Date: 20210128
  Transmission Date: 20210419
  Serious: Yes (Hospitalization)
  Sender: FDA-Public Use
  Company Number: FR-ROCHE-2616503

PATIENT
  Age: 65 Year
  Sex: Female
  Weight: 77 kg

DRUGS (13)
  1. AVASTIN [Suspect]
     Active Substance: BEVACIZUMAB
     Indication: OVARIAN CANCER
     Dosage: 25 MG/ML
     Route: 042
     Dates: start: 20190619, end: 20200309
  2. CARDENSIEL [Concomitant]
     Active Substance: BISOPROLOL FUMARATE
  3. KARDEGIC [Concomitant]
     Active Substance: ASPIRIN DL-LYSINE
  4. TRAMADOL. [Concomitant]
     Active Substance: TRAMADOL
  5. ESOMEPRAZOLE. [Concomitant]
     Active Substance: ESOMEPRAZOLE MAGNESIUM
  6. PARACETAMOL [Concomitant]
     Active Substance: ACETAMINOPHEN
  7. ZYMA?D2 [Concomitant]
     Active Substance: ERGOCALCIFEROL
  8. SMECTA [Concomitant]
     Active Substance: MONTMORILLONITE
  9. LEVOTHYROX [Concomitant]
     Active Substance: LEVOTHYROXINE
  10. TIORFAN [Concomitant]
     Active Substance: RACECADOTRIL
  11. LEXOMIL [Concomitant]
     Active Substance: BROMAZEPAM
  12. SPASFON [Concomitant]
  13. LOPERAMIDE [Concomitant]
     Active Substance: LOPERAMIDE

REACTIONS (1)
  - Retinal ischaemia [Recovering/Resolving]

NARRATIVE: CASE EVENT DATE: 20200316
